FAERS Safety Report 9802495 (Version 2)
Quarter: 2014Q1

REPORT INFORMATION
  Report Type: Spontaneous
  Country: ES (occurrence: ES)
  Receive Date: 20140107
  Receipt Date: 20140114
  Transmission Date: 20141002
  Serious: Yes (Other)
  Sender: FDA-Public Use
  Company Number: ES-B.I. PHARMACEUTICALS,INC./RIDGEFIELD-2014-BI-00694YA

PATIENT
  Age: 82 Year
  Sex: Male

DRUGS (1)
  1. TAMSULOSINA [Suspect]
     Indication: PROSTATIC DISORDER
     Dosage: 0.4 MG
     Route: 048

REACTIONS (1)
  - Uveitis [Unknown]
